FAERS Safety Report 19767060 (Version 1)
Quarter: 2021Q3

REPORT INFORMATION
  Report Type: Spontaneous
  Country: US (occurrence: US)
  Receive Date: 20210830
  Receipt Date: 20210830
  Transmission Date: 20211014
  Serious: Yes (Death, Hospitalization)
  Sender: FDA-Public Use
  Company Number: None

PATIENT
  Age: 18 Year
  Sex: Male

DRUGS (10)
  1. OXYCONTIN [Concomitant]
     Active Substance: OXYCODONE HYDROCHLORIDE
  2. MELATONIN [Concomitant]
     Active Substance: MELATONIN
  3. ONDANSETRON ODT [Concomitant]
     Active Substance: ONDANSETRON
  4. NEULASTA [Suspect]
     Active Substance: PEGFILGRASTIM
     Indication: RENAL CANCER
     Dosage: ?          OTHER FREQUENCY:EVERY 3 WEEKS;?
     Route: 058
     Dates: start: 20210114, end: 20210815
  5. OXYCODONE [Concomitant]
     Active Substance: OXYCODONE
  6. CLINDAMYCIN LOT [Concomitant]
  7. FAMOTIDINE. [Concomitant]
     Active Substance: FAMOTIDINE
  8. SMZ/TMP DS [Concomitant]
     Active Substance: SULFAMETHOXAZOLE\TRIMETHOPRIM
  9. DEXAMETHASON [Concomitant]
     Active Substance: DEXAMETHASONE
  10. ERLOTINIB [Suspect]
     Active Substance: ERLOTINIB
     Indication: PRODUCT USED FOR UNKNOWN INDICATION
     Route: 048
     Dates: start: 20210814, end: 20210815

REACTIONS (1)
  - Death [None]

NARRATIVE: CASE EVENT DATE: 20210815
